FAERS Safety Report 6957544-8 (Version None)
Quarter: 2010Q3

REPORT INFORMATION
  Report Type: 
  Country: None (occurrence: None)
  Receive Date: 20100831
  Receipt Date: 20100820
  Transmission Date: 20110219
  Serious: Yes (Hospitalization)
  Sender: FDA-Public Use
  Company Number: FR-ELI_LILLY_AND_COMPANY-FR201006006723

PATIENT
  Age: 57 Year
  Sex: Female
  Weight: 88 kg

DRUGS (9)
  1. BYETTA [Suspect]
     Indication: TYPE 2 DIABETES MELLITUS
     Dosage: 10 UG, UNKNOWN
     Route: 058
     Dates: start: 20090701, end: 20100621
  2. DIAMICRON [Concomitant]
     Indication: TYPE 2 DIABETES MELLITUS
     Dosage: 30 MG, 4/D
     Route: 048
     Dates: start: 20080501
  3. METFORMIN HCL [Concomitant]
     Indication: TYPE 2 DIABETES MELLITUS
     Dosage: 500 MG, 3/D
     Route: 048
     Dates: start: 20090701
  4. TAHOR [Concomitant]
     Indication: DYSLIPIDAEMIA
     Dosage: 40 MG, DAILY (1/D)
     Route: 048
  5. VALSARTAN  AND HYDROCHLOROTHIAZIDE [Concomitant]
     Indication: HYPERTENSION
     Dosage: 1 D/F, DAILY (1/D)
     Route: 048
  6. ACEBUTOLOL [Concomitant]
     Indication: HYPERTENSION
     Dosage: 200 MG, 2/D
     Route: 048
  7. KARDEGIC [Concomitant]
     Indication: HYPERTENSION
     Dosage: 160 MG, DAILY (1/D)
     Route: 048
  8. AMLODIPINE [Concomitant]
     Indication: HYPERTENSION
     Dosage: 10 MG, DAILY (1/D)
     Route: 048
  9. BIPERIDYS [Concomitant]
     Indication: NAUSEA
     Dosage: UNK, AS NEEDED
     Route: 048

REACTIONS (1)
  - PANCREATITIS ACUTE [None]
